FAERS Safety Report 21547760 (Version 3)
Quarter: 2023Q1

REPORT INFORMATION
  Report Type: Report from Study
  Country: US (occurrence: US)
  Receive Date: 20221103
  Receipt Date: 20230330
  Transmission Date: 20230418
  Serious: Yes (Other)
  Sender: FDA-Public Use
  Company Number: US-ABBVIE-22K-163-4434998-00

PATIENT
  Sex: Male

DRUGS (2)
  1. IMBRUVICA [Suspect]
     Active Substance: IBRUTINIB
     Indication: B-cell small lymphocytic lymphoma
     Dosage: LAST ADMIN DATE: 2019
     Route: 048
     Dates: start: 201902
  2. IMBRUVICA [Suspect]
     Active Substance: IBRUTINIB
     Indication: B-cell small lymphocytic lymphoma
     Route: 048
     Dates: start: 20190225

REACTIONS (19)
  - Hip fracture [Unknown]
  - Blood immunoglobulin G abnormal [Unknown]
  - Sluggishness [Unknown]
  - Depression [Unknown]
  - Immunodeficiency [Unknown]
  - Blood immunoglobulin M abnormal [Unknown]
  - Mobility decreased [Unknown]
  - Elephantiasis [Unknown]
  - Pancreatic disorder [Unknown]
  - Cardiac disorder [Unknown]
  - Hepatic lesion [Unknown]
  - Blood pressure abnormal [Unknown]
  - Diarrhoea [Unknown]
  - Pleural effusion [Unknown]
  - Adverse food reaction [Unknown]
  - Renal function test abnormal [Unknown]
  - Red blood cell abnormality [Unknown]
  - White blood cell disorder [Unknown]
  - Fall [Unknown]
